FAERS Safety Report 6496160-1 (Version None)
Quarter: 2009Q4

REPORT INFORMATION
  Report Type: 
  Country: None (occurrence: None)
  Receive Date: 20091214
  Receipt Date: 20091007
  Transmission Date: 20100525
  Serious: No
  Sender: FDA-Public Use
  Company Number: US-BRISTOL-MYERS SQUIBB COMPANY-14811301

PATIENT
  Sex: Male

DRUGS (2)
  1. ABILIFY [Suspect]
     Dates: start: 20090101
  2. EFFEXOR [Concomitant]

REACTIONS (1)
  - BLOOD GLUCOSE INCREASED [None]
